FAERS Safety Report 4850342-0 (Version None)
Quarter: 2005Q4

REPORT INFORMATION
  Report Type: 
  Country: None (occurrence: None)
  Receive Date: 20051123
  Receipt Date: 20051010
  Transmission Date: 20060501
  Serious: No
  Sender: FDA-Public Use
  Company Number: 218483

PATIENT
  Age: 64 Year
  Sex: Female

DRUGS (1)
  1. RAPTIVA [Suspect]
     Indication: PSORIASIS
     Dosage: 0.9MG, 1/WEEK, UNK

REACTIONS (2)
  - HEADACHE [None]
  - INJECTION SITE HAEMORRHAGE [None]
